FAERS Safety Report 4443113-0 (Version None)
Quarter: 2004Q3

REPORT INFORMATION
  Report Type: 
  Country: None (occurrence: None)
  Receive Date: 20040907
  Receipt Date: 20040823
  Transmission Date: 20050211
  Serious: Yes (Other)
  Sender: FDA-Public Use
  Company Number: 04-00520

PATIENT
  Age: 32 Year
  Sex: Male

DRUGS (1)
  1. PSEUDOEPHRINE HYDROCHLORIDE SYRUP (ALPHARMA) [Suspect]
     Dosage: 900MG, ORAL
     Route: 048

REACTIONS (2)
  - CHORIORETINOPATHY [None]
  - MACULAR DEGENERATION [None]
